FAERS Safety Report 14738703 (Version 1)
Quarter: 2018Q2

REPORT INFORMATION
  Report Type: Spontaneous
  Country: FR (occurrence: FR)
  Receive Date: 20180409
  Receipt Date: 20180409
  Transmission Date: 20180711
  Serious: Yes (Other)
  Sender: FDA-Public Use
  Company Number: FR-BIOMARINAP-FR-2018-117759

PATIENT
  Age: 7 Year
  Sex: Female
  Weight: 24 kg

DRUGS (1)
  1. ALDURAZYME [Suspect]
     Active Substance: LARONIDASE
     Indication: MUCOPOLYSACCHARIDOSIS I
     Dosage: 2500 IU, QW
     Route: 041
     Dates: start: 20180314, end: 20180314

REACTIONS (3)
  - Hyperthermia [Recovered/Resolved]
  - Cyanosis [Recovered/Resolved]
  - Administration related reaction [Recovered/Resolved]

NARRATIVE: CASE EVENT DATE: 20180314
